FAERS Safety Report 22534691 (Version 1)
Quarter: 2023Q2

REPORT INFORMATION
  Report Type: Spontaneous
  Country: US (occurrence: US)
  Receive Date: 20230608
  Receipt Date: 20230608
  Transmission Date: 20230722
  Serious: Yes (Hospitalization, Other)
  Sender: FDA-Public Use
  Company Number: None

PATIENT
  Age: 69 Year
  Sex: Male

DRUGS (4)
  1. LEVOFLOXACIN [Suspect]
     Active Substance: LEVOFLOXACIN
     Indication: Antibiotic therapy
     Dosage: UNK,  UNK (INTERMITTENT)
  2. LACTOBACILLUS ACIDOPHILUS [Suspect]
     Active Substance: LACTOBACILLUS ACIDOPHILUS
     Indication: Colitis ulcerative
     Dosage: UNK,  UNK
  3. LACTOBACILLUS ACIDOPHILUS [Suspect]
     Active Substance: LACTOBACILLUS ACIDOPHILUS
     Indication: Probiotic therapy
  4. BALSALAZIDE [Concomitant]
     Active Substance: BALSALAZIDE
     Indication: Colitis ulcerative
     Dosage: UNK,  UNK

REACTIONS (6)
  - Septic cerebral embolism [Unknown]
  - Endocarditis bacterial [Unknown]
  - Septic shock [Unknown]
  - Lactobacillus bacteraemia [Unknown]
  - Bacterial sepsis [Unknown]
  - Bacterial translocation [Unknown]
